FAERS Safety Report 6946416-0 (Version None)
Quarter: 2010Q3

REPORT INFORMATION
  Report Type: 
  Country: None (occurrence: None)
  Receive Date: 20100827
  Receipt Date: 20100816
  Transmission Date: 20110219
  Serious: Yes (Hospitalization)
  Sender: FDA-Public Use
  Company Number: US-ELI_LILLY_AND_COMPANY-US201008006634

PATIENT
  Sex: Female

DRUGS (11)
  1. FORTEO [Suspect]
     Indication: OSTEOPOROSIS
     Dosage: 20 UG, DAILY (1/D)
  2. ASPIRIN [Concomitant]
     Dosage: 325 MG, DAILY (1/D)
  3. LEXAPRO [Concomitant]
     Dosage: UNK, DAILY (1/D)
  4. LISINOPRIL [Concomitant]
     Dosage: 10 MG, DAILY (1/D)
  5. METOPROLOL [Concomitant]
     Dosage: 50 MG, DAILY (1/D)
  6. PLAVIX [Concomitant]
     Dosage: 75 MG, DAILY (1/D)
  7. PEPCID [Concomitant]
     Dosage: 20 MG, DAILY (1/D)
  8. SIMVASTATIN [Concomitant]
     Dosage: 80 MG, DAILY (1/D)
  9. CALTRATE +D [Concomitant]
     Dosage: UNK, DAILY (1/D)
  10. CENTRUM SILVER [Concomitant]
     Dosage: UNK, DAILY (1/D)
  11. FISH OIL [Concomitant]
     Dosage: UNK, DAILY (1/D)

REACTIONS (2)
  - BLOOD PRESSURE ABNORMAL [None]
  - CARDIAC DISORDER [None]
